FAERS Safety Report 13893981 (Version 1)
Quarter: 2017Q3

REPORT INFORMATION
  Report Type: Spontaneous
  Country: US (occurrence: US)
  Receive Date: 20170822
  Receipt Date: 20170822
  Transmission Date: 20171127
  Serious: No
  Sender: FDA-Public Use
  Company Number: US-ENDO PHARMACEUTICALS INC-2017-003278

PATIENT
  Sex: Female
  Weight: 121.9 kg

DRUGS (9)
  1. METFORMIN HYDROCHLORIDE TABLETS 500MG [Concomitant]
     Active Substance: METFORMIN HYDROCHLORIDE
     Indication: POLYCYSTIC OVARIES
  2. AMITRIPTYLINE HCL 50MG [Concomitant]
     Active Substance: AMITRIPTYLINE
     Indication: INSOMNIA
  3. ROBAXIN [Suspect]
     Active Substance: METHOCARBAMOL
     Indication: MUSCLE SPASMS
     Dosage: UNK, UNKNOWN
     Route: 065
     Dates: end: 2016
  4. PROAIR HFA [Concomitant]
     Active Substance: ALBUTEROL SULFATE
     Indication: ASTHMA
  5. FENTANYL TRANSDERMAL SYSTEM [Concomitant]
     Active Substance: FENTANYL
     Indication: PAIN
  6. VALIUM [Concomitant]
     Active Substance: DIAZEPAM
     Indication: MUSCLE SPASMS
  7. SPIRONOLACTONE TABLETS 25MG [Concomitant]
     Active Substance: SPIRONOLACTONE
     Indication: HIRSUTISM
  8. FLONASE [Concomitant]
     Active Substance: FLUTICASONE PROPIONATE
     Indication: HYPERSENSITIVITY
  9. HYDROMORPHONE [Concomitant]
     Active Substance: HYDROMORPHONE
     Indication: BREAKTHROUGH PAIN

REACTIONS (1)
  - Drug ineffective [Unknown]
